FAERS Safety Report 9069484 (Version 3)
Quarter: 2013Q2

REPORT INFORMATION
  Report Type: Report from Study
  Country: FR (occurrence: FR)
  Receive Date: 20130215
  Receipt Date: 20130412
  Transmission Date: 20140414
  Serious: Yes (Death, Other)
  Sender: FDA-Public Use
  Company Number: FR-CELGENEUS-056-C4047-13021565

PATIENT
  Age: 61 Year
  Sex: Male
  Weight: 59 kg

DRUGS (6)
  1. CC-4047 [Suspect]
     Indication: PLASMA CELL MYELOMA
     Dosage: 4 MILLIGRAM
     Route: 048
     Dates: end: 20130208
  2. DEXAMETHASONE [Suspect]
     Indication: PLASMA CELL MYELOMA
     Dosage: X4 DAYS
     Route: 065
  3. PAMIDRONATE [Concomitant]
     Indication: PLASMA CELL MYELOMA
     Dosage: 1.0714 MILLIGRAM
     Route: 065
  4. PAMIDRONATE [Concomitant]
     Dosage: 3.2143 MILLIGRAM
     Route: 065
  5. KARDEGIC [Concomitant]
     Indication: THROMBOSIS PROPHYLAXIS
     Route: 065
  6. INNOHEP [Concomitant]
     Indication: THROMBOSIS PROPHYLAXIS
     Dosage: 4500
     Route: 065

REACTIONS (8)
  - Plasma cell myeloma [Fatal]
  - Staphylococcal sepsis [Unknown]
  - Spinal compression fracture [Unknown]
  - Platelet count decreased [Unknown]
  - Neutrophil count decreased [Unknown]
  - Haemoglobin decreased [Unknown]
  - Platelet count decreased [Unknown]
  - Treatment failure [Unknown]
